FAERS Safety Report 12779933 (Version 3)
Quarter: 2016Q4

REPORT INFORMATION
  Report Type: Spontaneous
  Country: US (occurrence: US)
  Receive Date: 20160926
  Receipt Date: 20161128
  Transmission Date: 20170207
  Serious: Yes (Other)
  Sender: FDA-Public Use
  Company Number: US-PFIZER INC-2016447939

PATIENT
  Age: 72 Year
  Sex: Female

DRUGS (5)
  1. PRISTIQ EXTENDED-RELEASE [Concomitant]
     Active Substance: DESVENLAFAXINE SUCCINATE
     Indication: BIPOLAR DISORDER
     Dosage: 50 MG, 1X/DAY (BED TIME)
  2. XELJANZ XR [Suspect]
     Active Substance: TOFACITINIB CITRATE
     Indication: RHEUMATOID ARTHRITIS
     Dosage: 11 MG, 1X/DAY (MORNING)
     Route: 048
     Dates: start: 20160727
  3. BUSPIRONE [Concomitant]
     Active Substance: BUSPIRONE HYDROCHLORIDE
     Indication: BIPOLAR DISORDER
     Dosage: UNK UNK, 2X/DAY (DOSE: 15 AT BREAKFAST AND 15 AT DINNER (UNIT NOT PROVIDED).)
  4. CARDIZEM [Concomitant]
     Active Substance: DILTIAZEM HYDROCHLORIDE
     Dosage: 30 MG, 2X/DAY (TAKES IT IN AM AND PM)
  5. CARBAMAZEPINE. [Concomitant]
     Active Substance: CARBAMAZEPINE
     Indication: BIPOLAR DISORDER
     Dosage: UNK UNK, 2X/DAY (100 MG IN MORNING AND AT BED TIME 300 MG)

REACTIONS (5)
  - Aspergillus infection [Unknown]
  - Drug ineffective [Unknown]
  - Dizziness [Unknown]
  - Heart rate abnormal [Unknown]
  - Weight increased [Unknown]
